FAERS Safety Report 25338386 (Version 1)
Quarter: 2025Q2

REPORT INFORMATION
  Report Type: Spontaneous
  Country: US (occurrence: US)
  Receive Date: 20250520
  Receipt Date: 20250520
  Transmission Date: 20250716
  Serious: No
  Sender: SANOFI AVENTIS
  Company Number: US-SANOFI-02523621

PATIENT
  Age: 46 Year
  Sex: Female

DRUGS (1)
  1. LOVENOX [Suspect]
     Active Substance: ENOXAPARIN SODIUM
     Indication: Cardiac failure
     Dosage: 150 MG, BID

REACTIONS (3)
  - Urticaria [Unknown]
  - Injection site pain [Unknown]
  - Off label use [Unknown]
